FAERS Safety Report 10419173 (Version 1)
Quarter: 2014Q2

REPORT INFORMATION
  Report Type: Report from Study
  Country: US (occurrence: None)
  Receive Date: 20140627
  Receipt Date: 20140627
  Transmission Date: 20141212
  Serious: No
  Sender: FDA-Public Use
  Company Number: CABO-14004202

PATIENT
  Age: 71 Year
  Sex: Male
  Weight: 128.2 kg

DRUGS (2)
  1. COMETRIQ (CABOZANTINIB) CAPSULE [Suspect]
     Indication: PROSTATE CANCER
     Route: 048
     Dates: start: 20140414, end: 20140506
  2. FONDAPARINUX (FONDAPARINUX) (7.5 MILLIGRAM, INJECTION) [Concomitant]

REACTIONS (10)
  - Dry mouth [None]
  - Pain in jaw [None]
  - Prostatic specific antigen increased [None]
  - Oropharyngeal pain [None]
  - Fatigue [None]
  - Dysphagia [None]
  - Diarrhoea [None]
  - Epistaxis [None]
  - Hypertension [None]
  - Off label use [None]
